FAERS Safety Report 18473391 (Version 1)
Quarter: 2020Q4

REPORT INFORMATION
  Report Type: Spontaneous
  Country: US (occurrence: US)
  Receive Date: 20201106
  Receipt Date: 20201106
  Transmission Date: 20210114
  Serious: Yes (Other)
  Sender: FDA-Public Use
  Company Number: US-COLLEGIUM PHARMACEUTICAL, INC.-2020CGM00343

PATIENT
  Sex: Female

DRUGS (3)
  1. NUCYNTA [Suspect]
     Active Substance: TAPENTADOL HYDROCHLORIDE
     Dosage: 50 MG, 2X/DAY
  2. NUCYNTA [Suspect]
     Active Substance: TAPENTADOL HYDROCHLORIDE
     Dosage: ^TOOK 5 OF THE NUCYNTA TABLETS^
  3. PREDNISONE. [Concomitant]
     Active Substance: PREDNISONE
     Dosage: 5 TABLETS

REACTIONS (3)
  - Malaise [Recovered/Resolved]
  - Loss of consciousness [Recovered/Resolved]
  - Accidental overdose [Recovered/Resolved]
